FAERS Safety Report 7795753-9 (Version None)
Quarter: 2011Q4

REPORT INFORMATION
  Report Type: 
  Country: None (occurrence: None)
  Receive Date: 20111004
  Receipt Date: 20110928
  Transmission Date: 20120403
  Serious: Yes (Other)
  Sender: FDA-Public Use
  Company Number: US-AMGEN-USASP2009000281

PATIENT
  Sex: Male

DRUGS (1)
  1. ENBREL [Suspect]

REACTIONS (2)
  - CARDIAC MURMUR [None]
  - ASTHMA [None]
